FAERS Safety Report 10391000 (Version 1)
Quarter: 2014Q3

REPORT INFORMATION
  Report Type: Spontaneous
  Country: NL (occurrence: NL)
  Receive Date: 20140818
  Receipt Date: 20140818
  Transmission Date: 20150326
  Serious: Yes (Other)
  Sender: FDA-Public Use
  Company Number: NL-PFIZER INC-2014227352

PATIENT
  Age: 57 Year
  Sex: Male

DRUGS (3)
  1. CABERGOLINE. [Suspect]
     Active Substance: CABERGOLINE
     Indication: OSTEOPOROSIS
     Dosage: 5 MG, WEEKLY
     Dates: start: 20140318
  2. CALCICHEW [Concomitant]
     Active Substance: CALCIUM CARBONATE
     Dosage: 1000 MG, 1X/DAY
     Dates: start: 20041201
  3. ALENDRONIC ACID [Concomitant]
     Active Substance: ALENDRONIC ACID
     Dosage: 70 MG, WEEKLY
     Dates: start: 20041201

REACTIONS (2)
  - Syncope [Recovered/Resolved]
  - Epilepsy [Recovered/Resolved]

NARRATIVE: CASE EVENT DATE: 20140508
